FAERS Safety Report 5558908-X (Version None)
Quarter: 2007Q4

REPORT INFORMATION
  Report Type: 
  Country: None (occurrence: None)
  Receive Date: 20071214
  Receipt Date: 20070912
  Transmission Date: 20080405
  Serious: No
  Sender: FDA-Public Use
  Company Number: US-ABBOTT-07P-163-0416916-00

PATIENT
  Sex: Female
  Weight: 61.29 kg

DRUGS (8)
  1. HUMIRA [Suspect]
     Indication: CROHN'S DISEASE
     Route: 058
     Dates: start: 20070522
  2. PREGABALIN [Concomitant]
     Indication: MIGRAINE
  3. ALLEGRA D 24 HOUR [Concomitant]
     Indication: SINUS DISORDER
  4. CITALOPRAM HYDROBROMIDE [Concomitant]
     Indication: PREMENSTRUAL SYNDROME
  5. CITALOPRAM HYDROBROMIDE [Concomitant]
     Indication: STRESS
  6. MERCAPTOPURINE [Concomitant]
     Indication: CROHN'S DISEASE
  7. GERITOL COMPLETE [Concomitant]
     Indication: VITAMIN SUPPLEMENTATION
  8. ESTROGENS CONJUGATED [Concomitant]
     Indication: HORMONE REPLACEMENT THERAPY

REACTIONS (4)
  - INJECTION SITE ERYTHEMA [None]
  - INJECTION SITE PRURITUS [None]
  - INJECTION SITE SWELLING [None]
  - INJECTION SITE WARMTH [None]
